FAERS Safety Report 11350088 (Version 2)
Quarter: 2015Q3

REPORT INFORMATION
  Report Type: Spontaneous
  Country: GB (occurrence: GB)
  Receive Date: 20150807
  Receipt Date: 20150830
  Transmission Date: 20151125
  Serious: Yes (Death, Other)
  Sender: FDA-Public Use
  Company Number: GB-TEVA-582947ACC

PATIENT
  Age: 85 Year
  Sex: Male
  Weight: 79 kg

DRUGS (6)
  1. ASPIRIN. [Concomitant]
     Active Substance: ASPIRIN
  2. ATENOLOL. [Concomitant]
     Active Substance: ATENOLOL
  3. WARFARIN [Suspect]
     Active Substance: WARFARIN
     Indication: ATRIAL FIBRILLATION
     Route: 048
     Dates: start: 20150106, end: 20150625
  4. PARACETAMOL [Concomitant]
     Active Substance: ACETAMINOPHEN
  5. LACTULOSE. [Concomitant]
     Active Substance: LACTULOSE
  6. OMEPRAZOLE. [Concomitant]
     Active Substance: OMEPRAZOLE

REACTIONS (2)
  - Haematemesis [Not Recovered/Not Resolved]
  - Gastritis haemorrhagic [Fatal]

NARRATIVE: CASE EVENT DATE: 20150626
